FAERS Safety Report 8015415-2 (Version None)
Quarter: 2011Q4

REPORT INFORMATION
  Report Type: 
  Country: None (occurrence: None)
  Receive Date: 20111230
  Receipt Date: 20111221
  Transmission Date: 20120403
  Serious: Yes (Hospitalization)
  Sender: FDA-Public Use
  Company Number: US-BRISTOL-MYERS SQUIBB COMPANY-16311854

PATIENT
  Age: 80 Year
  Sex: Male

DRUGS (5)
  1. PREDNISONE TAB [Concomitant]
     Indication: BLADDER DISORDER
  2. ASPIRIN [Concomitant]
     Indication: HYPERTENSION
  3. COUMADIN [Suspect]
     Indication: HEART RATE DECREASED
  4. PREDNISONE TAB [Concomitant]
     Indication: RENAL DISORDER
  5. PREDNISONE TAB [Concomitant]
     Indication: ARTHRITIS

REACTIONS (4)
  - DIZZINESS [None]
  - LOSS OF CONSCIOUSNESS [None]
  - WEIGHT DECREASED [None]
  - SYNCOPE [None]
